FAERS Safety Report 8410194 (Version 2)
Quarter: 2013Q2

REPORT INFORMATION
  Report Type: Spontaneous
  Country: US (occurrence: US)
  Receive Date: 20120217
  Receipt Date: 20130408
  Transmission Date: 20140414
  Serious: Yes (Hospitalization)
  Sender: FDA-Public Use
  Company Number: US-BIOGENIDEC-2012BI005276

PATIENT
  Age: 66 Year
  Sex: Female

DRUGS (1)
  1. TYSABRI [Suspect]
     Indication: MULTIPLE SCLEROSIS
     Route: 042
     Dates: start: 20090112, end: 201212

REACTIONS (15)
  - Osteomyelitis [Unknown]
  - Dermal cyst [Recovered/Resolved]
  - Cellulitis [Recovered/Resolved]
  - Asthenia [Recovered/Resolved]
  - Onychomycosis [Unknown]
  - Mental impairment [Unknown]
  - Autoimmune disorder [Unknown]
  - Skin papilloma [Unknown]
  - Corynebacterium test negative [Unknown]
  - Clostridium test positive [Unknown]
  - Immune system disorder [Unknown]
  - Nasal ulcer [Unknown]
  - Infection susceptibility increased [Unknown]
  - Oral fungal infection [Unknown]
  - Fungal infection [Unknown]
